FAERS Safety Report 19784037 (Version 1)
Quarter: 2021Q3

REPORT INFORMATION
  Report Type: Spontaneous
  Country: US (occurrence: US)
  Receive Date: 20210903
  Receipt Date: 20210903
  Transmission Date: 20211014
  Serious: No
  Sender: FDA-Public Use
  Company Number: None

PATIENT
  Age: 18 Year
  Sex: Female
  Weight: 83 kg

DRUGS (2)
  1. BARICITINIB. [Suspect]
     Active Substance: BARICITINIB
     Indication: COVID-19
     Route: 048
     Dates: start: 20210826, end: 20210902
  2. DEXAMETHASONE. [Concomitant]
     Active Substance: DEXAMETHASONE
     Dates: start: 20210823, end: 20210901

REACTIONS (6)
  - Sputum culture positive [None]
  - Hypotension [None]
  - Immunosuppression [None]
  - Pyrexia [None]
  - Leukocytosis [None]
  - Staphylococcal infection [None]

NARRATIVE: CASE EVENT DATE: 20210829
